FAERS Safety Report 5309278-3 (Version None)
Quarter: 2007Q2

REPORT INFORMATION
  Report Type: 
  Country: None (occurrence: None)
  Receive Date: 20070424
  Receipt Date: 20070424
  Transmission Date: 20071010
  Serious: Yes (Hospitalization)
  Sender: FDA-Public Use
  Company Number: None

PATIENT
  Age: 43 Year
  Sex: Female
  Weight: 63.5036 kg

DRUGS (1)
  1. ZELNORM [Suspect]
     Indication: HYPERTENSION
     Dosage: NOR SURE ONCE A DAY
     Dates: start: 20070118, end: 20070127

REACTIONS (11)
  - ACTIVITIES OF DAILY LIVING IMPAIRED [None]
  - ASTHENIA [None]
  - BLOOD GLUCOSE ABNORMAL [None]
  - DISORIENTATION [None]
  - DIZZINESS [None]
  - DYSPNOEA [None]
  - EMOTIONAL DISORDER [None]
  - FEELING ABNORMAL [None]
  - GAIT DISTURBANCE [None]
  - PRESYNCOPE [None]
  - SPEECH DISORDER [None]
